FAERS Safety Report 4678913-5 (Version None)
Quarter: 2005Q2

REPORT INFORMATION
  Report Type: 
  Country: None (occurrence: None)
  Receive Date: 20050531
  Receipt Date: 20050517
  Transmission Date: 20051028
  Serious: No
  Sender: FDA-Public Use
  Company Number: 214558

PATIENT
  Age: 15 Year
  Sex: Male
  Weight: 84.8 kg

DRUGS (5)
  1. NUTROPIN AQ [Suspect]
     Indication: RENAL FAILURE CHRONIC
     Dosage: 6 MG, QD, SUBCUTANEOUS
     Route: 058
     Dates: start: 20020417, end: 20020508
  2. ATENOLOL [Concomitant]
  3. CELLCEPT [Concomitant]
  4. NORVASC [Concomitant]
  5. PROGRAF [Concomitant]

REACTIONS (1)
  - DIABETES MELLITUS INSULIN-DEPENDENT [None]
